FAERS Safety Report 6939945-7 (Version None)
Quarter: 2010Q3

REPORT INFORMATION
  Report Type: 
  Country: None (occurrence: None)
  Receive Date: 20100825
  Receipt Date: 20100817
  Transmission Date: 20110219
  Serious: Yes (Other)
  Sender: FDA-Public Use
  Company Number: US-PFIZER INC-2010074975

PATIENT
  Sex: Female
  Weight: 70.295 kg

DRUGS (2)
  1. LIPITOR [Suspect]
     Indication: BLOOD CHOLESTEROL INCREASED
     Dosage: 40 MG, 1X/DAY
     Route: 048
     Dates: start: 20040101, end: 20100609
  2. VITAMINS [Concomitant]
     Dosage: UNK
     Dates: end: 20100601

REACTIONS (7)
  - B-CELL LYMPHOMA [None]
  - DIVERTICULITIS [None]
  - DYSPEPSIA [None]
  - GASTRIC DISORDER [None]
  - GASTROOESOPHAGEAL REFLUX DISEASE [None]
  - MUSCLE SPASMS [None]
  - NAUSEA [None]
